FAERS Safety Report 9358625 (Version 3)
Quarter: 2013Q3

REPORT INFORMATION
  Report Type: Report from Study
  Country: US (occurrence: US)
  Receive Date: 20130620
  Receipt Date: 20130708
  Transmission Date: 20140515
  Serious: Yes (Congenital Anomaly)
  Sender: FDA-Public Use
  Company Number: US-VIIV HEALTHCARE LIMITED-A1026996A

PATIENT
  Sex: Male
  Weight: 2.3 kg

DRUGS (2)
  1. COMBIVIR [Suspect]
     Indication: ANTIRETROVIRAL THERAPY
     Dosage: 2TAB PER DAY
     Route: 064
     Dates: start: 20130207
  2. KALETRA [Suspect]
     Indication: ANTIRETROVIRAL THERAPY
     Dosage: 4TAB PER DAY
     Route: 064
     Dates: start: 20130207

REACTIONS (4)
  - Congenital hydronephrosis [Unknown]
  - Kidney malformation [Unknown]
  - Premature baby [Unknown]
  - Foetal exposure during pregnancy [Unknown]
